FAERS Safety Report 11128192 (Version 1)
Quarter: 2015Q2

REPORT INFORMATION
  Report Type: Spontaneous
  Country: JP (occurrence: None)
  Receive Date: 20150519
  Receipt Date: 20150519
  Transmission Date: 20150821
  Serious: Yes (Other)
  Sender: FDA-Public Use
  Company Number: JP2015JPN061862

PATIENT

DRUGS (3)
  1. TRUVADA (EMTRICITABINE, TENOFOVIR DISOPROXIL FUMARATE, EMTRICITABINE, TENOFOVIR DISOPROXIL FUMARATE, EMTRICITABINE, TENOFOVIR DISOPROXIL FUMARATE, EMTRICITABINE, TENOFOVIR DISOPROXIL FUMARATE) [Concomitant]
  2. ZIAGEN [Suspect]
     Active Substance: ABACAVIR SULFATE
     Route: 048
  3. LEXIVA [Suspect]
     Active Substance: FOSAMPRENAVIR CALCIUM
     Route: 048

REACTIONS (2)
  - Renal impairment [None]
  - Drug eruption [None]
